FAERS Safety Report 9735454 (Version 1)
Quarter: 2013Q4

REPORT INFORMATION
  Report Type: Spontaneous
  Country: US (occurrence: None)
  Receive Date: 20131205
  Receipt Date: 20131205
  Transmission Date: 20140711
  Serious: No
  Sender: FDA-Public Use
  Company Number: None

PATIENT
  Age: 32 Year
  Sex: Female
  Weight: 70.31 kg

DRUGS (1)
  1. FLAGYL [Suspect]
     Indication: RECTAL STENOSIS
     Route: 048
     Dates: start: 20130515, end: 20130524

REACTIONS (8)
  - Migraine [None]
  - Hallucination [None]
  - Mania [None]
  - Psychotic disorder [None]
  - Insomnia [None]
  - Decreased appetite [None]
  - Weight decreased [None]
  - Speech disorder [None]
